FAERS Safety Report 20682099 (Version 1)
Quarter: 2022Q2

REPORT INFORMATION
  Report Type: Spontaneous
  Country: US (occurrence: US)
  Receive Date: 20220407
  Receipt Date: 20220407
  Transmission Date: 20220721
  Serious: Yes (Other)
  Sender: FDA-Public Use
  Company Number: US-SUN PHARMACEUTICAL INDUSTRIES LTD-2022R1-331978

PATIENT
  Age: 57 Year
  Sex: Male

DRUGS (1)
  1. PREDNISONE [Suspect]
     Active Substance: PREDNISONE
     Indication: Pancreatitis
     Dosage: 40 MILLIGRAM, DAILY
     Route: 065
     Dates: start: 201808, end: 202009

REACTIONS (1)
  - Blood creatinine increased [Recovering/Resolving]
